FAERS Safety Report 7036113-8 (Version None)
Quarter: 2010Q4

REPORT INFORMATION
  Report Type: 
  Country: None (occurrence: None)
  Receive Date: 20101008
  Receipt Date: 20091123
  Transmission Date: 20110411
  Serious: No
  Sender: FDA-Public Use
  Company Number: US-BRISTOL-MYERS SQUIBB COMPANY-14868855

PATIENT
  Age: 72 Year
  Sex: Male
  Weight: 79 kg

DRUGS (3)
  1. AVAPRO [Suspect]
     Indication: HYPERTENSION
     Dosage: CONSUMER STARTED AVAPRO 10 YEARS AGO.
  2. LIPITOR [Concomitant]
  3. PREVACID [Concomitant]

REACTIONS (1)
  - DYSGEUSIA [None]
